FAERS Safety Report 8960720 (Version 1)
Quarter: 2012Q4

REPORT INFORMATION
  Report Type: 
  Country: US (occurrence: US)
  Receive Date: 20121212
  Receipt Date: 20121212
  Transmission Date: 20130627
  Serious: Yes (Death, Hospitalization)
  Sender: FDA-Public Use
  Company Number: US-PFIZER INC-2012308280

PATIENT
  Age: 18 Year
  Sex: Female
  Weight: 77.5 kg

DRUGS (8)
  1. ZOSYN [Suspect]
  2. CYTARABINE [Suspect]
     Indication: ACUTE MYELOID LEUKEMIA
     Dosage: UNK
     Route: 037
     Dates: start: 20120703, end: 20121022
  3. VELCADE [Suspect]
     Indication: ACUTE MYELOID LEUKEMIA
     Dosage: UNK mg/m2, cyclic
     Route: 042
     Dates: start: 20120703, end: 20121026
  4. MITOXANTRONE HYDROCHLORIDE [Suspect]
     Indication: ACUTE MYELOID LEUKEMIA
     Dosage: UNK mg/m2, cyclic
     Route: 042
     Dates: start: 20120703, end: 20121024
  5. ETOPOSIDE [Suspect]
     Indication: ACUTE MYELOID LEUKEMIA
     Dosage: UNK mg/m2, cyclic
     Route: 042
     Dates: start: 20120703, end: 201210
  6. DAUNORUBICIN HYDROCHLORIDE [Suspect]
     Indication: ACUTE MYELOID LEUKEMIA
     Dosage: UNK
     Route: 042
     Dates: start: 20120703, end: 201210
  7. CEFEPIME [Suspect]
     Indication: DRUG USE FOR UNKNOWN INDICATION
  8. CASPOFUNGIN [Suspect]
     Indication: ACUTE MYELOID LEUKEMIA NOS
     Dosage: UNK
     Dates: start: 201207, end: 201210

REACTIONS (2)
  - Hyperammonaemia [Fatal]
  - Caecitis [Not Recovered/Not Resolved]
